FAERS Safety Report 15166556 (Version 2)
Quarter: 2018Q3

REPORT INFORMATION
  Report Type: Spontaneous
  Country: ES (occurrence: ES)
  Receive Date: 20180719
  Receipt Date: 20180930
  Transmission Date: 20181010
  Serious: Yes (Other)
  Sender: FDA-Public Use
  Company Number: ES-ALEXION PHARMACEUTICALS INC.-A201808928

PATIENT
  Sex: Male
  Weight: 79 kg

DRUGS (2)
  1. SOLIRIS [Suspect]
     Active Substance: ECULIZUMAB
     Indication: PAROXYSMAL NOCTURNAL HAEMOGLOBINURIA
     Dosage: 600 MG, QW
     Route: 042
     Dates: start: 20161227, end: 20170124
  2. SOLIRIS [Suspect]
     Active Substance: ECULIZUMAB
     Dosage: 900 MG, QW
     Route: 042
     Dates: start: 20170207

REACTIONS (12)
  - Anaemia [Recovered/Resolved]
  - Haemoglobin decreased [Recovered/Resolved]
  - Hyperbilirubinaemia [Not Recovered/Not Resolved]
  - Haptoglobin decreased [Not Recovered/Not Resolved]
  - Blood lactate dehydrogenase increased [Not Recovered/Not Resolved]
  - Asthenia [Not Recovered/Not Resolved]
  - Extravascular haemolysis [Recovered/Resolved]
  - Reticulocytosis [Not Recovered/Not Resolved]
  - Inappropriate schedule of drug administration [Unknown]
  - Haemolysis [Recovered/Resolved]
  - Red blood cell abnormality [Recovered/Resolved]
  - Coombs direct test positive [Not Recovered/Not Resolved]

NARRATIVE: CASE EVENT DATE: 20170207
